FAERS Safety Report 5073702-4 (Version None)
Quarter: 2006Q3

REPORT INFORMATION
  Report Type: 
  Country: None (occurrence: None)
  Receive Date: 20060808
  Receipt Date: 20050418
  Transmission Date: 20061208
  Serious: No
  Sender: FDA-Public Use
  Company Number: US-AMGEN-KDL128098

PATIENT
  Sex: Male

DRUGS (3)
  1. PROCRIT [Suspect]
     Indication: MYELODYSPLASTIC SYNDROME
     Dates: start: 20050221
  2. PREDNISONE [Concomitant]
     Dates: start: 20050321
  3. BLOOD CELLS, PACKED HUMAN [Concomitant]

REACTIONS (5)
  - ASTHENIA [None]
  - CONDITION AGGRAVATED [None]
  - FALL [None]
  - LACERATION [None]
  - SYNCOPE [None]
